FAERS Safety Report 15154703 (Version 5)
Quarter: 2019Q1

REPORT INFORMATION
  Report Type: Spontaneous
  Country: GB (occurrence: GB)
  Receive Date: 20180717
  Receipt Date: 20190203
  Transmission Date: 20190417
  Serious: Yes (Hospitalization)
  Sender: FDA-Public Use
  Company Number: GB-ROCHE-2154083

PATIENT
  Age: 52 Year
  Sex: Female

DRUGS (7)
  1. DIAZEPAM. [Suspect]
     Active Substance: DIAZEPAM
     Indication: SEIZURE PROPHYLAXIS
     Route: 065
     Dates: start: 20180626
  2. CLOZARIL [Suspect]
     Active Substance: CLOZAPINE
     Route: 048
     Dates: start: 20180626
  3. CLOZARIL [Suspect]
     Active Substance: CLOZAPINE
     Route: 048
     Dates: start: 20180524
  4. CLOZARIL [Suspect]
     Active Substance: CLOZAPINE
     Indication: SCHIZOPHRENIA
     Route: 048
     Dates: start: 201806
  5. DIAZEPAM. [Suspect]
     Active Substance: DIAZEPAM
     Route: 065
     Dates: start: 201806
  6. CLOZARIL [Suspect]
     Active Substance: CLOZAPINE
     Route: 048
     Dates: start: 20180626
  7. DIAZEPAM. [Suspect]
     Active Substance: DIAZEPAM
     Route: 065

REACTIONS (14)
  - Antipsychotic drug level increased [Unknown]
  - Sepsis [Unknown]
  - Mean cell haemoglobin concentration decreased [Unknown]
  - Myoclonus [Recovering/Resolving]
  - Joint dislocation [Unknown]
  - Polyuria [Unknown]
  - Red blood cell count decreased [Unknown]
  - Anaemia [Not Recovered/Not Resolved]
  - Pneumonia [Unknown]
  - Red cell distribution width increased [Unknown]
  - Haematocrit decreased [Unknown]
  - Sedation [Not Recovered/Not Resolved]
  - Neutrophil count increased [Unknown]
  - Platelet count increased [Unknown]

NARRATIVE: CASE EVENT DATE: 201806
